FAERS Safety Report 16130483 (Version 1)
Quarter: 2019Q1

REPORT INFORMATION
  Report Type: Report from Study
  Country: US (occurrence: US)
  Receive Date: 20190328
  Receipt Date: 20190328
  Transmission Date: 20190418
  Serious: Yes (Other)
  Sender: FDA-Public Use
  Company Number: US-GLAXOSMITHKLINE-US2018224234

PATIENT
  Age: 36 Year
  Sex: Female
  Weight: 74.83 kg

DRUGS (6)
  1. VENTOLIN HFA [Suspect]
     Active Substance: ALBUTEROL SULFATE
     Indication: PRODUCT USED FOR UNKNOWN INDICATION
     Dosage: 90 MCG/MG, PRN
     Route: 055
  2. XANAX [Concomitant]
     Active Substance: ALPRAZOLAM
  3. BOOSTRIX [Suspect]
     Active Substance: TETANUS TOXOID, REDUCED DIPHTHERIA TOXOID AND ACELLULAR PERTUSSIS VACCINE, ADSORBED ANTIGENS
     Indication: PROPHYLAXIS
     Route: 030
     Dates: start: 20181207, end: 20181207
  4. PRENATAL VITAMINS [Concomitant]
     Active Substance: VITAMINS
     Indication: PREGNANCY
     Dosage: 1 UNK, QD
  5. PROZAC [Concomitant]
     Active Substance: FLUOXETINE HYDROCHLORIDE
  6. DTPA VACCINE. [Suspect]
     Active Substance: DIPHTHERIA AND TETANUS TOXOIDS AND PERTUSSIS VACCINE
     Indication: PROPHYLAXIS
     Dates: start: 20180924, end: 20180924

REACTIONS (5)
  - Live birth [Unknown]
  - Extra dose administered [Unknown]
  - Exposure during pregnancy [None]
  - Placenta praevia [Unknown]
  - Exposure during pregnancy [Unknown]

NARRATIVE: CASE EVENT DATE: 20181018
